FAERS Safety Report 5449592-4 (Version None)
Quarter: 2007Q3

REPORT INFORMATION
  Report Type: 
  Country: None (occurrence: None)
  Receive Date: 20070910
  Receipt Date: 20070816
  Transmission Date: 20080115
  Serious: Yes (Hospitalization)
  Sender: FDA-Public Use
  Company Number: 2007AP000945

PATIENT
  Age: 58 Year
  Sex: Male

DRUGS (7)
  1. PRAVASTATIN [Suspect]
  2. AMLODIPINE BESYLATE [Suspect]
  3. SIMVASTATIN [Suspect]
     Indication: HYPERCHOLESTEROLAEMIA
  4. WARFARIN SODIUM [Suspect]
     Indication: MITRAL VALVE REPLACEMENT
  5. BISOPROLOL FUMARATE [Concomitant]
  6. RAMIPRIL [Concomitant]
  7. SPIRONOLACTONE [Concomitant]

REACTIONS (11)
  - DRUG INTERACTION [None]
  - EOSINOPHIL COUNT INCREASED [None]
  - GUILLAIN-BARRE SYNDROME [None]
  - HAEMOGLOBIN DECREASED [None]
  - HYPERSENSITIVITY [None]
  - HYPONATRAEMIA [None]
  - INTERNATIONAL NORMALISED RATIO INCREASED [None]
  - NEPHRITIS [None]
  - RECTAL HAEMORRHAGE [None]
  - RENAL FAILURE [None]
  - THERAPEUTIC RESPONSE DECREASED [None]
